FAERS Safety Report 10257915 (Version 1)
Quarter: 2014Q2

REPORT INFORMATION
  Report Type: Spontaneous
  Country: US (occurrence: US)
  Receive Date: 20140625
  Receipt Date: 20140625
  Transmission Date: 20141212
  Serious: No
  Sender: FDA-Public Use
  Company Number: US-PFIZER INC-2014170465

PATIENT
  Age: 52 Year
  Sex: Female
  Weight: 86.53 kg

DRUGS (2)
  1. GABAPENTIN [Suspect]
     Indication: FIBROMYALGIA
     Dosage: 300 MG, 3X/DAY
     Dates: start: 201311
  2. GABAPENTIN [Suspect]
     Dosage: 600 MG, 3X/DAY(2-300 MG CAPSULES 3X EACH DAY)

REACTIONS (2)
  - Drug ineffective for unapproved indication [Unknown]
  - Pain [Unknown]
